FAERS Safety Report 12438997 (Version 1)
Quarter: 2016Q2

REPORT INFORMATION
  Report Type: Spontaneous
  Country: IN (occurrence: IN)
  Receive Date: 20160606
  Receipt Date: 20160606
  Transmission Date: 20160815
  Serious: Yes (Other)
  Sender: FDA-Public Use
  Company Number: IN-SIGMAPHARM LABORATORIES, LLC-2016SIG00016

PATIENT
  Age: 6 Year
  Sex: Female

DRUGS (3)
  1. ACITRETIN. [Suspect]
     Active Substance: ACITRETIN
     Indication: ICHTHYOSIS
     Dosage: 25 MG, 1X/DAY
     Route: 048
  2. EMOLLIENTS [Concomitant]
     Active Substance: EMOLLIENTS
     Dosage: UNK
     Route: 061
  3. KERATOLYTICS [Concomitant]
     Route: 061

REACTIONS (1)
  - Rickets [Unknown]
